FAERS Safety Report 4389826-0 (Version None)
Quarter: 2004Q2

REPORT INFORMATION
  Report Type: 
  Country: None (occurrence: None)
  Receive Date: 20040628
  Receipt Date: 20040614
  Transmission Date: 20050107
  Serious: Yes (Hospitalization, Other)
  Sender: FDA-Public Use
  Company Number: 2004040067

PATIENT
  Age: 47 Year
  Sex: Male
  Weight: 68.9467 kg

DRUGS (7)
  1. NEURONTIN [Suspect]
     Indication: ILL-DEFINED DISORDER
     Dosage: 1800 MG (600 MG, 3 IN 1 D) ,ORAL
     Route: 048
     Dates: start: 20010301, end: 20040101
  2. OLANZAPINE [Suspect]
     Indication: ILL-DEFINED DISORDER
     Dosage: ORAL
     Route: 048
     Dates: end: 20040101
  3. ARIPIPRAZOLE (ARIPIPRAZOLE) [Suspect]
     Indication: ILL-DEFINED DISORDER
     Dosage: ORAL
     Route: 048
     Dates: start: 20040101, end: 20040604
  4. VALPROATE SODIUM [Concomitant]
  5. PAROXETINE HYDROCHLORIDE [Concomitant]
  6. CLONAZEPAM [Concomitant]
  7. DIPHENHYDRAMINE HCL [Concomitant]

REACTIONS (4)
  - BRONCHOSTENOSIS [None]
  - GASTROOESOPHAGEAL REFLUX DISEASE [None]
  - ODYNOPHAGIA [None]
  - SUICIDAL IDEATION [None]
